FAERS Safety Report 23519663 (Version 2)
Quarter: 2024Q1

REPORT INFORMATION
  Report Type: Other
  Country: GR (occurrence: GR)
  Receive Date: 20240213
  Receipt Date: 20240224
  Transmission Date: 20240410
  Serious: Yes (Hospitalization)
  Sender: FDA-Public Use
  Company Number: GR-BoehringerIngelheim-2024-BI-006529

PATIENT
  Age: 57 Year
  Sex: Female

DRUGS (2)
  1. ALTEPLASE [Suspect]
     Active Substance: ALTEPLASE
     Indication: Cerebral ischaemia
     Route: 042
  2. NIVOLUMAB [Concomitant]
     Active Substance: NIVOLUMAB
     Indication: Lung neoplasm malignant

REACTIONS (5)
  - Pulmonary embolism [Unknown]
  - Depressed level of consciousness [Unknown]
  - Haemorrhagic transformation stroke [Unknown]
  - Ischaemic cerebral infarction [Unknown]
  - Deep vein thrombosis [Unknown]
